FAERS Safety Report 9276222 (Version 1)
Quarter: 2012Q4

REPORT INFORMATION
  Report Type: Spontaneous
  Country: US (occurrence: None)
  Receive Date: 20121012
  Receipt Date: 20121012
  Transmission Date: 20130627
  Serious: Yes (Other)
  Sender: FDA-Public Use
  Company Number: DKLU1084964

PATIENT
  Age: 39 Year
  Sex: Female

DRUGS (1)
  1. SABRIL [Suspect]
     Indication: PARTIAL SEIZURES
     Dosage: 2 IN 2 D
     Route: 048
     Dates: start: 201208

REACTIONS (1)
  - Blindness [None]
